FAERS Safety Report 9355121 (Version 1)
Quarter: 2013Q2

REPORT INFORMATION
  Report Type: Spontaneous
  Country: US (occurrence: US)
  Receive Date: 20130619
  Receipt Date: 20130619
  Transmission Date: 20140414
  Serious: No
  Sender: FDA-Public Use
  Company Number: US-009507513-1306USA006429

PATIENT
  Age: 58 Year
  Sex: Female
  Weight: 92.52 kg

DRUGS (4)
  1. NASONEX [Suspect]
     Indication: SEASONAL ALLERGY
     Dosage: DOSAGE FORM 50 MCG, BID
     Route: 045
     Dates: start: 20130520, end: 20130523
  2. HYDROCHLOROTHIAZIDE [Concomitant]
  3. MICARDIS [Concomitant]
  4. BONIVA [Concomitant]

REACTIONS (3)
  - Myalgia [Recovered/Resolved]
  - Arthralgia [Recovered/Resolved]
  - Oedema peripheral [Unknown]
